FAERS Safety Report 9154072 (Version 1)
Quarter: 2013Q1

REPORT INFORMATION
  Report Type: Spontaneous
  Country: US (occurrence: US)
  Receive Date: 20130311
  Receipt Date: 20130311
  Transmission Date: 20140127
  Serious: Yes (Hospitalization)
  Sender: FDA-Public Use
  Company Number: US-SANOFI-AVENTIS-2013SA023122

PATIENT
  Age: 59 Year
  Sex: Female
  Weight: 97 kg

DRUGS (2)
  1. PLAVIX [Suspect]
     Indication: STENT PLACEMENT
     Route: 048
     Dates: start: 2003, end: 201212
  2. PLAVIX [Suspect]
     Indication: STENT PLACEMENT
     Dates: start: 201301

REACTIONS (2)
  - Polyp [Unknown]
  - Intra-abdominal haemorrhage [Unknown]
